FAERS Safety Report 4575617-4 (Version None)
Quarter: 2005Q1

REPORT INFORMATION
  Report Type: 
  Country: None (occurrence: None)
  Receive Date: 20050209
  Receipt Date: 20041101
  Transmission Date: 20050727
  Serious: Yes (Death)
  Sender: FDA-Public Use
  Company Number: US-GLAXOSMITHKLINE-B0349817A

PATIENT
  Age: 32 Year
  Sex: Female

DRUGS (4)
  1. BUPROPION HCL [Suspect]
     Route: 048
  2. TOPIRAMATE [Suspect]
     Route: 048
  3. VENLAFAXINE HCL [Suspect]
     Route: 048
  4. OLANZAPINE [Suspect]
     Route: 048

REACTIONS (4)
  - CARDIO-RESPIRATORY ARREST [None]
  - COMPLETED SUICIDE [None]
  - INTENTIONAL MISUSE [None]
  - OVERDOSE [None]
